FAERS Safety Report 13719801 (Version 1)
Quarter: 2017Q3

REPORT INFORMATION
  Report Type: Report from Study
  Country: CL (occurrence: CL)
  Receive Date: 20170705
  Receipt Date: 20170705
  Transmission Date: 20171127
  Serious: Yes (Other)
  Sender: FDA-Public Use
  Company Number: PHHY2017CL093777

PATIENT
  Age: 12 Year
  Sex: Male

DRUGS (1)
  1. OMNITROPE [Suspect]
     Active Substance: SOMATROPIN
     Indication: SMALL FOR DATES BABY
     Dosage: 3 IU (5 MG) QD
     Route: 058
     Dates: start: 20151201

REACTIONS (1)
  - Limb asymmetry [Recovered/Resolved with Sequelae]

NARRATIVE: CASE EVENT DATE: 20161231
